FAERS Safety Report 5333010-0 (Version None)
Quarter: 2007Q2

REPORT INFORMATION
  Report Type: 
  Country: None (occurrence: None)
  Receive Date: 20070306
  Receipt Date: 20060602
  Transmission Date: 20071010
  Serious: Yes (Death)
  Sender: FDA-Public Use
  Company Number: A03200603507

PATIENT

DRUGS (3)
  1. PLAVIX [Suspect]
     Dosage: ORAL
     Route: 048
  2. ASPIRIN [Suspect]
     Dosage: ORAL
     Route: 048
  3. ALTEPLASE - UNKNOWN UNIT DOSE : UNKNOWN [Suspect]

REACTIONS (1)
  - CEREBRAL HAEMORRHAGE [None]
